FAERS Safety Report 4426404-9 (Version None)
Quarter: 2004Q3

REPORT INFORMATION
  Report Type: 
  Country: None (occurrence: None)
  Receive Date: 20040811
  Receipt Date: 20040722
  Transmission Date: 20050211
  Serious: Yes (Hospitalization)
  Sender: FDA-Public Use
  Company Number: 2004PK01266

PATIENT
  Age: 83 Year
  Sex: Female
  Weight: 52 kg

DRUGS (10)
  1. BELOC ZOK [Suspect]
     Indication: ATRIAL FIBRILLATION
     Dosage: 95 MG DAILY PO
     Route: 048
     Dates: start: 20030101, end: 20031001
  2. BELOC ZOK [Suspect]
     Indication: ATRIAL FIBRILLATION
     Dosage: 47.5 MG DAILY PO
     Route: 048
     Dates: start: 20031016
  3. CIPRAMIL [Suspect]
     Indication: DEPRESSION
     Dosage: 20 MG DAILY PO
     Route: 048
     Dates: start: 20030601, end: 20031023
  4. ACTRAPID HUMAN [Concomitant]
  5. CALCIMAGON [Concomitant]
  6. DIGITOXIN [Concomitant]
  7. FALITHROM      FAHLBERG [Concomitant]
  8. NORVASC [Concomitant]
  9. PROTAPHANE MC [Concomitant]
  10. TAMOXIFEN [Concomitant]

REACTIONS (4)
  - BLOOD PRESSURE INCREASED [None]
  - BRADYCARDIA [None]
  - CARDIAC DISORDER [None]
  - DRUG INTERACTION [None]
